FAERS Safety Report 7033760-4 (Version None)
Quarter: 2010Q4

REPORT INFORMATION
  Report Type: 
  Country: None (occurrence: None)
  Receive Date: 20101007
  Receipt Date: 20100927
  Transmission Date: 20110411
  Serious: Yes (Hospitalization)
  Sender: FDA-Public Use
  Company Number: PHHO2009JP07360

PATIENT
  Sex: Female
  Weight: 55 kg

DRUGS (18)
  1. CERTICAN [Suspect]
     Indication: RENAL TRANSPLANT
     Dosage: 1.5 MG / DAY
     Route: 048
     Dates: start: 20090422
  2. SIMULECT [Suspect]
     Indication: RENAL TRANSPLANT
     Dosage: 20 MG (DAY 0)
     Route: 042
     Dates: start: 20090421, end: 20090421
  3. SIMULECT [Suspect]
     Dosage: 20 MG (DAY 4)
     Route: 042
     Dates: start: 20090425, end: 20090425
  4. NEORAL [Suspect]
     Indication: RENAL TRANSPLANT
     Dosage: 200 MG / DAY
     Route: 048
     Dates: start: 20090519
  5. PREDNISOLONE [Suspect]
     Indication: RENAL TRANSPLANT
     Dosage: 10 MG / DAY
     Route: 048
     Dates: start: 20090512
  6. DENOSINE [Suspect]
     Dosage: 250 MG DAILY
     Route: 042
     Dates: start: 20090612
  7. DENOSINE [Suspect]
     Dosage: 200 MG DAILY
     Dates: start: 20090614, end: 20090618
  8. BAKTAR [Concomitant]
     Indication: INFECTION PROPHYLAXIS
  9. IMMUNE GLOBULIN INTRAVENOUS (HUMAN) [Concomitant]
     Indication: INFECTION PROPHYLAXIS
  10. DAIKENTYUTO [Concomitant]
     Indication: CONSTIPATION
  11. ISODINE [Concomitant]
  12. HALIZON [Concomitant]
  13. PROTECADIN [Concomitant]
  14. BONALON [Concomitant]
  15. HIRUDOID [Concomitant]
  16. SELBEX [Concomitant]
  17. SOLDEM 1 [Concomitant]
  18. NEO-MINOPHAGEN C [Concomitant]

REACTIONS (12)
  - BONE MARROW FAILURE [None]
  - COUGH [None]
  - CYTOMEGALOVIRUS TEST POSITIVE [None]
  - HEADACHE [None]
  - HEPATIC FUNCTION ABNORMAL [None]
  - OVARIAN CYST [None]
  - OVARIAN ENLARGEMENT [None]
  - OVARIAN GERM CELL TERATOMA BENIGN [None]
  - OVARIAN LESION EXCISION [None]
  - PNEUMONIA CYTOMEGALOVIRAL [None]
  - PYREXIA [None]
  - WHITE BLOOD CELL COUNT DECREASED [None]
